FAERS Safety Report 18780194 (Version 1)
Quarter: 2021Q1

REPORT INFORMATION
  Report Type: Spontaneous
  Country: US (occurrence: US)
  Receive Date: 20210125
  Receipt Date: 20210125
  Transmission Date: 20210419
  Serious: No
  Sender: FDA-Public Use
  Company Number: US-ALLERGAN-2003827US

PATIENT
  Sex: Female

DRUGS (3)
  1. MONUROL [Suspect]
     Active Substance: FOSFOMYCIN TROMETHAMINE
     Indication: INFECTION PROPHYLAXIS
     Dosage: 1 DF
  2. MONUROL [Suspect]
     Active Substance: FOSFOMYCIN TROMETHAMINE
     Indication: URINARY TRACT INFECTION
     Dosage: 1 DF
     Dates: start: 202008
  3. MONUROL [Suspect]
     Active Substance: FOSFOMYCIN TROMETHAMINE
     Indication: ESCHERICHIA INFECTION

REACTIONS (5)
  - Off label use [Unknown]
  - Diarrhoea [Unknown]
  - Thirst [Unknown]
  - Product prescribing error [Unknown]
  - Prescription drug used without a prescription [Unknown]
